FAERS Safety Report 7391510-6 (Version None)
Quarter: 2011Q2

REPORT INFORMATION
  Report Type: 
  Country: None (occurrence: None)
  Receive Date: 20110404
  Receipt Date: 20101101
  Transmission Date: 20111010
  Serious: Yes (Hospitalization, Other)
  Sender: FDA-Public Use
  Company Number: US-BAYER-201029375NA

PATIENT
  Sex: Female
  Weight: 114 kg

DRUGS (5)
  1. YASMIN [Suspect]
     Indication: CONTRACEPTION
     Dosage: UNK UNK, UNK
     Route: 048
     Dates: start: 20020101, end: 20080715
  2. CIPRO [Concomitant]
  3. YASMIN [Suspect]
     Indication: MENORRHAGIA
  4. YASMIN [Suspect]
     Indication: PREMENSTRUAL SYNDROME
  5. SYNTHROID [Concomitant]
     Dosage: 112 UNK, UNK

REACTIONS (2)
  - PAIN [None]
  - TRANSIENT ISCHAEMIC ATTACK [None]
